FAERS Safety Report 9064746 (Version 1)
Quarter: 2013Q1

REPORT INFORMATION
  Report Type: Spontaneous
  Country: NI (occurrence: NI)
  Receive Date: 20130130
  Receipt Date: 20130130
  Transmission Date: 20140127
  Serious: Yes (Hospitalization)
  Sender: FDA-Public Use
  Company Number: NI-ASTRAZENECA-2013SE04291

PATIENT
  Sex: Female
  Weight: 72 kg

DRUGS (4)
  1. VIMOVO [Suspect]
     Indication: OSTEOARTHRITIS
     Dosage: 500 MG/20 MG TWO TIMES A DAY
     Route: 048
     Dates: start: 20121101, end: 20121115
  2. SALBUTAMOL [Concomitant]
     Indication: ASTHMA
     Route: 055
  3. AMINOPHYLLINE [Concomitant]
     Indication: ASTHMA
     Route: 042
  4. NIFEDIPINE [Concomitant]
     Indication: HYPERTENSION
     Route: 048
     Dates: start: 20100101

REACTIONS (2)
  - Hypoxia [Recovered/Resolved]
  - Asthma [Recovered/Resolved]
